FAERS Safety Report 7511474-1 (Version None)
Quarter: 2011Q2

REPORT INFORMATION
  Report Type: 
  Country: None (occurrence: None)
  Receive Date: 20110531
  Receipt Date: 20110517
  Transmission Date: 20111010
  Serious: Yes (Hospitalization, Other)
  Sender: FDA-Public Use
  Company Number: US-JNJFOC-20110402936

PATIENT
  Sex: Female
  Weight: 53.52 kg

DRUGS (8)
  1. FENTANYL-100 [Suspect]
     Indication: PRODUCT USED FOR UNKNOWN INDICATION
     Route: 062
  2. FENTANYL-100 [Suspect]
     Indication: BACK PAIN
     Dosage: 2-75 UG/HR PATCHES EVERY 72 HOURS
     Route: 062
     Dates: start: 20110318
  3. DURAGESIC-100 [Suspect]
     Route: 062
     Dates: end: 20110318
  4. UNKNOWN MEDICATION [Concomitant]
     Indication: CARDIAC DISORDER
     Route: 065
  5. FENTANYL-100 [Suspect]
     Indication: PAIN
     Dosage: 2-75 UG/HR PATCHES EVERY 72 HOURS
     Route: 062
     Dates: start: 20110318
  6. DURAGESIC-100 [Suspect]
     Indication: BACK PAIN
     Route: 062
     Dates: start: 20010101
  7. DURAGESIC-100 [Suspect]
     Dosage: 2-75 UG/HR PATCHES
     Route: 062
     Dates: start: 20110318
  8. HYDROCODONE BITARTRATE [Concomitant]
     Indication: BREAKTHROUGH PAIN
     Route: 048

REACTIONS (5)
  - CARDIAC OPERATION [None]
  - DRUG INEFFECTIVE [None]
  - BEDRIDDEN [None]
  - PRODUCT QUALITY ISSUE [None]
  - THERAPEUTIC RESPONSE DELAYED [None]
